FAERS Safety Report 20192569 (Version 1)
Quarter: 2021Q4

REPORT INFORMATION
  Report Type: Report from Study
  Country: FR (occurrence: FR)
  Receive Date: 20211216
  Receipt Date: 20211216
  Transmission Date: 20220303
  Serious: Yes (Other)
  Sender: FDA-Public Use
  Company Number: FR-NOVARTISPH-NVSC2021FR279184

PATIENT
  Sex: Female
  Weight: 62 kg

DRUGS (6)
  1. TABRECTA [Suspect]
     Active Substance: CAPMATINIB
     Indication: Bronchial carcinoma
     Dosage: 400 MG, BID (IN THE MORNING AND IN THE EVENING)
     Route: 048
     Dates: start: 20211105, end: 20211203
  2. TABRECTA [Suspect]
     Active Substance: CAPMATINIB
     Dosage: 300 MG, BID (MORNING, EVENING)
     Route: 048
     Dates: start: 20211204
  3. LEVOTHYROXINE [Concomitant]
     Active Substance: LEVOTHYROXINE
     Indication: Hypothyroidism
     Dosage: 75 MG
     Route: 048
     Dates: start: 20200724
  4. VENLAFAXINE [Concomitant]
     Active Substance: VENLAFAXINE HYDROCHLORIDE
     Indication: Neuralgia
     Dosage: 37.5 MG
     Route: 048
     Dates: start: 20210930
  5. AMITRIPTYLINE HYDROCHLORIDE [Concomitant]
     Active Substance: AMITRIPTYLINE HYDROCHLORIDE
     Indication: Neuralgia
     Dosage: 7 DROPS
     Route: 048
     Dates: start: 20210115
  6. IRBESARTAN [Concomitant]
     Active Substance: IRBESARTAN
     Indication: Hypertension
     Dosage: 75 MG
     Route: 048
     Dates: start: 20150101

REACTIONS (6)
  - Toxic skin eruption [Recovering/Resolving]
  - Asthenia [Not Recovered/Not Resolved]
  - Nausea [Not Recovered/Not Resolved]
  - Alanine aminotransferase increased [Unknown]
  - Lichenoid keratosis [Unknown]
  - Anaemia [Unknown]

NARRATIVE: CASE EVENT DATE: 20211117
